FAERS Safety Report 15500665 (Version 1)
Quarter: 2018Q4

REPORT INFORMATION
  Report Type: Report from Study
  Country: CA (occurrence: CA)
  Receive Date: 20181015
  Receipt Date: 20181015
  Transmission Date: 20190205
  Serious: Yes (Hospitalization, Other)
  Sender: FDA-Public Use
  Company Number: CA-PFIZER INC-2018410306

PATIENT
  Age: 57 Year
  Sex: Female
  Weight: 73 kg

DRUGS (29)
  1. ACTEMRA [Suspect]
     Active Substance: TOCILIZUMAB
     Dosage: 350 MG, (1 EVERY 4 WEEK(S))
     Route: 042
  2. ELAVIL [ALLOPURINOL] [Concomitant]
     Dosage: UNK
  3. FOLIC ACID. [Concomitant]
     Active Substance: FOLIC ACID
     Dosage: UNK
  4. PANTOPRAZOLE [Concomitant]
     Active Substance: PANTOPRAZOLE
     Dosage: UNK
  5. PLAQUENIL [Concomitant]
     Active Substance: HYDROXYCHLOROQUINE SULFATE
     Dosage: UNK
  6. ACTEMRA [Suspect]
     Active Substance: TOCILIZUMAB
     Indication: RHEUMATOID ARTHRITIS
     Dosage: 350 MG, (1 EVERY 4 WEEK(S))
     Route: 042
  7. NALTREXONE [Suspect]
     Active Substance: NALTREXONE
     Dosage: UNK
  8. HYDROCHLOROTHIAZIDE. [Concomitant]
     Active Substance: HYDROCHLOROTHIAZIDE
     Dosage: UNK
  9. OMEGA 3 [FISH OIL] [Concomitant]
     Dosage: UNK
  10. PREDNISONE. [Concomitant]
     Active Substance: PREDNISONE
     Dosage: UNK
  11. HYDROMORPHONE HYDROCHLORIDE. [Suspect]
     Active Substance: HYDROMORPHONE HYDROCHLORIDE
     Indication: PAIN
     Dosage: UNK
     Route: 065
  12. ACTEMRA [Suspect]
     Active Substance: TOCILIZUMAB
     Dosage: 700 MG, (1 EVERY 4 WEEK(S))
     Route: 042
  13. AMITRIPTYLINE [Suspect]
     Active Substance: AMITRIPTYLINE
     Dosage: UNK
  14. ATIVAN [Concomitant]
     Active Substance: LORAZEPAM
     Dosage: UNK
  15. CYMBALTA [Concomitant]
     Active Substance: DULOXETINE HYDROCHLORIDE
     Dosage: UNK
  16. METHYLDOPA. [Concomitant]
     Active Substance: METHYLDOPA
     Dosage: UNK
  17. XELJANZ [Concomitant]
     Active Substance: TOFACITINIB CITRATE
     Dosage: UNK
  18. MESTINON [Suspect]
     Active Substance: PYRIDOSTIGMINE BROMIDE
     Dosage: UNK
  19. APO-FUROSEMIDE [Concomitant]
     Active Substance: FUROSEMIDE
     Dosage: UNK
  20. ACTEMRA [Suspect]
     Active Substance: TOCILIZUMAB
     Dosage: 162 MG, WEEKLY
     Route: 058
  21. ALENDRONATE [Concomitant]
     Active Substance: ALENDRONATE SODIUM
     Dosage: UNK
  22. ACTEMRA [Suspect]
     Active Substance: TOCILIZUMAB
     Dosage: 632 MG, (1 EVERY 4 WEEK(S))
     Route: 042
  23. METHOTREXATE. [Concomitant]
     Active Substance: METHOTREXATE
     Dosage: 10 MG, WEEKLY
     Route: 048
  24. ACTEMRA [Suspect]
     Active Substance: TOCILIZUMAB
     Dosage: 350 MG, (1 EVERY 4 WEEK(S))
     Route: 042
  25. NASONEX [Concomitant]
     Active Substance: MOMETASONE FUROATE
     Dosage: UNK
  26. ACTEMRA [Suspect]
     Active Substance: TOCILIZUMAB
     Dosage: 700 MG, (1 EVERY 4 WEEK(S))
     Route: 042
  27. ENALAPRIL [Concomitant]
     Active Substance: ENALAPRIL
     Dosage: UNK
  28. FUROSEMIDE. [Concomitant]
     Active Substance: FUROSEMIDE
     Dosage: UNK
  29. MORPHINE [Concomitant]
     Active Substance: MORPHINE
     Dosage: UNK

REACTIONS (55)
  - Blood creatine phosphokinase increased [Not Recovered/Not Resolved]
  - Diarrhoea [Not Recovered/Not Resolved]
  - Drug ineffective [Not Recovered/Not Resolved]
  - Joint swelling [Not Recovered/Not Resolved]
  - Nausea [Not Recovered/Not Resolved]
  - Oxygen saturation decreased [Not Recovered/Not Resolved]
  - Pain in extremity [Not Recovered/Not Resolved]
  - Urticaria [Not Recovered/Not Resolved]
  - Weight decreased [Not Recovered/Not Resolved]
  - Apnoea [Not Recovered/Not Resolved]
  - Cyst [Not Recovered/Not Resolved]
  - Dyspnoea [Not Recovered/Not Resolved]
  - Infection [Not Recovered/Not Resolved]
  - Pyrexia [Not Recovered/Not Resolved]
  - Respiratory failure [Not Recovered/Not Resolved]
  - Rheumatoid arthritis [Not Recovered/Not Resolved]
  - Sensory disturbance [Not Recovered/Not Resolved]
  - Skin ulcer [Not Recovered/Not Resolved]
  - Thrombosis [Not Recovered/Not Resolved]
  - Drug hypersensitivity [Not Recovered/Not Resolved]
  - Fluid retention [Not Recovered/Not Resolved]
  - Hypoaesthesia [Not Recovered/Not Resolved]
  - Neck pain [Not Recovered/Not Resolved]
  - Right ventricular failure [Not Recovered/Not Resolved]
  - Sinusitis [Not Recovered/Not Resolved]
  - Arthralgia [Not Recovered/Not Resolved]
  - Diaphragmatic paralysis [Not Recovered/Not Resolved]
  - Hypokalaemia [Not Recovered/Not Resolved]
  - Myasthenia gravis [Not Recovered/Not Resolved]
  - Cellulitis [Not Recovered/Not Resolved]
  - Enteritis [Not Recovered/Not Resolved]
  - Fatigue [Not Recovered/Not Resolved]
  - Hepatic enzyme increased [Not Recovered/Not Resolved]
  - Musculoskeletal pain [Not Recovered/Not Resolved]
  - Panic attack [Not Recovered/Not Resolved]
  - Thermal burn [Not Recovered/Not Resolved]
  - Vomiting [Not Recovered/Not Resolved]
  - Adiposis dolorosa [Not Recovered/Not Resolved]
  - Gastric infection [Not Recovered/Not Resolved]
  - Haemoglobin abnormal [Not Recovered/Not Resolved]
  - Muscular weakness [Not Recovered/Not Resolved]
  - Oral herpes [Not Recovered/Not Resolved]
  - Bursitis [Not Recovered/Not Resolved]
  - Dysphagia [Not Recovered/Not Resolved]
  - Myalgia [Not Recovered/Not Resolved]
  - Pain [Not Recovered/Not Resolved]
  - Paraesthesia [Not Recovered/Not Resolved]
  - Sleep disorder [Not Recovered/Not Resolved]
  - Blood pressure increased [Not Recovered/Not Resolved]
  - Diplopia [Not Recovered/Not Resolved]
  - Epistaxis [Not Recovered/Not Resolved]
  - Headache [Not Recovered/Not Resolved]
  - Hepatotoxicity [Not Recovered/Not Resolved]
  - Injection site pain [Not Recovered/Not Resolved]
  - Speech disorder [Not Recovered/Not Resolved]
